FAERS Safety Report 12195053 (Version 2)
Quarter: 2016Q1

REPORT INFORMATION
  Report Type: Spontaneous
  Country: FR (occurrence: FR)
  Receive Date: 20160321
  Receipt Date: 20160322
  Transmission Date: 20160526
  Serious: Yes (Hospitalization)
  Sender: FDA-Public Use
  Company Number: FR-ABBVIE-16K-056-1580502-00

PATIENT
  Sex: Male

DRUGS (2)
  1. HUMIRA [Suspect]
     Active Substance: ADALIMUMAB
     Indication: PSORIASIS
     Route: 058
     Dates: start: 2009, end: 2010
  2. HUMIRA [Suspect]
     Active Substance: ADALIMUMAB
     Route: 058
     Dates: start: 20120301, end: 201510

REACTIONS (14)
  - Antiphospholipid syndrome [Unknown]
  - Fluid overload [Unknown]
  - Antineutrophil cytoplasmic antibody positive [Unknown]
  - Vertigo positional [Unknown]
  - Peripheral sensorimotor neuropathy [Recovering/Resolving]
  - Antiphospholipid antibodies positive [Unknown]
  - Folate deficiency [Unknown]
  - Lacunar infarction [Unknown]
  - Muscle contractions involuntary [Unknown]
  - Antinuclear antibody positive [Unknown]
  - Facial paralysis [Unknown]
  - Emphysema [Unknown]
  - Blood immunoglobulin M increased [Unknown]
  - Thalamic infarction [Unknown]

NARRATIVE: CASE EVENT DATE: 2012
